FAERS Safety Report 6856161-8 (Version None)
Quarter: 2010Q3

REPORT INFORMATION
  Report Type: 
  Country: None (occurrence: None)
  Receive Date: 20100719
  Receipt Date: 20100707
  Transmission Date: 20110219
  Serious: Yes (Other)
  Sender: FDA-Public Use
  Company Number: PHHY2010JP36691

PATIENT
  Age: 79 Year
  Sex: Female

DRUGS (4)
  1. RASILEZ [Suspect]
     Indication: HYPERTENSION
     Dosage: UNK
     Route: 048
     Dates: start: 20100329, end: 20100603
  2. MUCOSTA [Suspect]
     Dosage: UNK
     Route: 048
     Dates: start: 20100115, end: 20100603
  3. GASMOTIN [Suspect]
     Dosage: UNK
     Route: 048
     Dates: start: 20100212, end: 20100603
  4. TAGAMET [Suspect]
     Dosage: UNK
     Route: 048
     Dates: start: 20100115, end: 20100603

REACTIONS (1)
  - LIVER DISORDER [None]
